FAERS Safety Report 8331132-3 (Version None)
Quarter: 2012Q2

REPORT INFORMATION
  Report Type: 
  Country: None (occurrence: None)
  Receive Date: 20120502
  Receipt Date: 20120424
  Transmission Date: 20120825
  Serious: Yes (Other)
  Sender: FDA-Public Use
  Company Number: US-PFIZER INC-2012071959

PATIENT
  Sex: Female
  Weight: 72.562 kg

DRUGS (19)
  1. CINNAMON [Concomitant]
     Indication: BLOOD GLUCOSE INCREASED
     Dosage: UNK
  2. VITAMIN C [Concomitant]
     Dosage: UNK
  3. VITAMIN D [Concomitant]
     Dosage: TAKE 1 TABLET EVERY DAY
     Route: 048
  4. LEVOTHYROXINE [Concomitant]
     Indication: THYROID DISORDER
     Dosage: 75 UG, 1X/DAY
  5. ESTRACE [Concomitant]
     Dosage: 0.01% (0.1 MG/G) EVERY DAY
     Route: 067
  6. LOVASTATIN [Concomitant]
     Dosage: 20 MG (TAKE 1 TABLET EVERY DAY WITH EVENING MEAL)
     Route: 048
  7. MECLIZINE HYDROCHLORIDE [Concomitant]
     Dosage: 12.5 MG THREE TIMES EVERY DAY AS NEEDED
     Route: 048
  8. REVATIO [Suspect]
     Indication: PULMONARY HYPERTENSION
     Dosage: 20 MG, 3X/DAY
     Route: 048
     Dates: start: 20070501
  9. REVATIO [Suspect]
     Dosage: 20 MG, 2X/DAY
     Route: 048
  10. COUMADIN [Concomitant]
     Indication: THROMBOSIS PROPHYLAXIS
     Dosage: 7.5 MG EVERY DAY AS DIRECTED
     Route: 048
  11. PRILOSEC [Concomitant]
     Indication: DYSPEPSIA
     Dosage: 20 MG (TAKE 1 CAPSULE EVERY DAY BEFORE A MEAL)
     Route: 048
  12. MULTI-VITAMINS [Concomitant]
     Dosage: TAKE ONE TABLET EVERY DAY WITH BED
     Route: 048
  13. COMBIVENT [Concomitant]
     Dosage: INHALE 2 PUFF BY INHALATION FOUR TIMES EVERY DAY
     Route: 055
  14. ELOCON [Concomitant]
     Dosage: 0.1% TOPICAL CREAM. APPLY EVERY DAY A THIN LAYER TO THE AFFECTED AREA
     Route: 061
  15. LUTEIN [Concomitant]
     Dosage: 20 MG
  16. VITAMIN E [Concomitant]
     Dosage: UNK
  17. EFFEXOR XR [Concomitant]
     Indication: DEPRESSION
     Dosage: 150 MG EVERY DAY
     Route: 048
  18. VITAMIN B-12 [Concomitant]
     Dosage: 1000 MCG
  19. CALCIUM [Concomitant]
     Dosage: TAKE 1 EVERY DAY
     Route: 048

REACTIONS (11)
  - UROSEPSIS [None]
  - URINARY TRACT INFECTION [None]
  - HALLUCINATION, VISUAL [None]
  - HALLUCINATION [None]
  - NAUSEA [None]
  - INSOMNIA [None]
  - DIZZINESS [None]
  - HYPOTENSION [None]
  - VERTIGO [None]
  - COUGH [None]
  - SNEEZING [None]
